FAERS Safety Report 16776521 (Version 1)
Quarter: 2019Q3

REPORT INFORMATION
  Report Type: Report from Study
  Country: CA (occurrence: CA)
  Receive Date: 20190905
  Receipt Date: 20190905
  Transmission Date: 20191005
  Serious: Yes (Hospitalization, Disabling, Other)
  Sender: FDA-Public Use
  Company Number: CA-PFIZER INC-2019373956

PATIENT
  Age: 74 Year
  Sex: Female

DRUGS (13)
  1. APO-PREDNISONE [Concomitant]
     Active Substance: PREDNISONE
     Dosage: 3 DF, 1X/DAY
     Route: 048
  2. TYLENOL WITH CODEINE [Concomitant]
     Active Substance: ACETAMINOPHEN\CODEINE PHOSPHATE
     Dosage: 1 DF; EVERY 4 HOURS
     Route: 048
  3. PREMARIN [Concomitant]
     Active Substance: ESTROGENS, CONJUGATED
     Dosage: 0.5 G, UNK
     Route: 067
  4. FUROSEMIDE. [Concomitant]
     Active Substance: FUROSEMIDE
     Dosage: UNK UNK, 1X/DAY
     Route: 048
  5. ACTEMRA [Concomitant]
     Active Substance: TOCILIZUMAB
     Dosage: 1 DF, MONTHLY
     Route: 042
  6. HYDROCORTISONE. [Concomitant]
     Active Substance: HYDROCORTISONE
     Dosage: 1 DF, 2X/DAY
  7. PREDNISONE. [Concomitant]
     Active Substance: PREDNISONE
     Dosage: 2 DF, 1X/DAY
     Route: 048
  8. SALBUTAMOL SULFATE [Concomitant]
     Active Substance: ALBUTEROL SULFATE
     Dosage: UNK
     Route: 055
  9. ACLASTA [Suspect]
     Active Substance: ZOLEDRONIC ACID
     Indication: OSTEOPOROSIS
  10. FOLIC ACID. [Concomitant]
     Active Substance: FOLIC ACID
     Dosage: 1 DF, 1X/DAY
     Route: 048
  11. CIPROFLOXACIN HCL [Suspect]
     Active Substance: CIPROFLOXACIN HYDROCHLORIDE
     Dosage: UNK
  12. ACLASTA [Suspect]
     Active Substance: ZOLEDRONIC ACID
     Indication: RHEUMATOID ARTHRITIS
     Dosage: 1 DF, EVERY YEAR
     Route: 042
  13. BIAXIN [Concomitant]
     Active Substance: CLARITHROMYCIN
     Dosage: 1 DF, 2X/DAY

REACTIONS (17)
  - Inappropriate schedule of product administration [Recovered/Resolved]
  - Pain in extremity [Recovered/Resolved]
  - Swelling [Recovered/Resolved]
  - Rash [Recovered/Resolved]
  - Off label use [Recovered/Resolved]
  - Urticaria [Recovered/Resolved]
  - Mobility decreased [Recovered/Resolved]
  - Contusion [Recovered/Resolved]
  - Rheumatoid arthritis [Recovered/Resolved]
  - Joint swelling [Recovered/Resolved]
  - Arthralgia [Recovered/Resolved]
  - Hypersensitivity [Recovered/Resolved]
  - Pruritus [Recovered/Resolved]
  - Product use in unapproved indication [Recovered/Resolved]
  - Pain [Recovered/Resolved]
  - Peripheral swelling [Recovered/Resolved]
  - Fall [Recovered/Resolved]
